FAERS Safety Report 14089017 (Version 1)
Quarter: 2017Q4

REPORT INFORMATION
  Report Type: Spontaneous
  Country: CN (occurrence: CN)
  Receive Date: 20171013
  Receipt Date: 20171013
  Transmission Date: 20180321
  Serious: Yes (Life-Threatening, Hospitalization)
  Sender: FDA-Public Use
  Company Number: CN-PFIZER INC-2017436440

PATIENT
  Age: 88 Year
  Sex: Male
  Weight: 70 kg

DRUGS (18)
  1. IBUPROFEN. [Concomitant]
     Active Substance: IBUPROFEN
  2. LEVOFLOXACIN. [Concomitant]
     Active Substance: LEVOFLOXACIN
  3. DEXAMETHASONE. [Concomitant]
     Active Substance: DEXAMETHASONE
  4. MANNATIDE [Concomitant]
  5. INSULIN [Concomitant]
     Active Substance: INSULIN NOS
  6. LIPITOR [Suspect]
     Active Substance: ATORVASTATIN CALCIUM
     Indication: CORONARY ARTERY DISEASE
     Dosage: 20 MG, 1X/DAY
     Route: 048
     Dates: start: 20161209, end: 20170817
  7. GLUCOBAY [Concomitant]
     Active Substance: ACARBOSE
     Dosage: 1 DF, 3X/DAY
  8. BETALOC [Concomitant]
     Active Substance: METOPROLOL TARTRATE
     Dosage: 1 DF, 2X/DAY
  9. ALFACALCIDOL [Concomitant]
     Active Substance: ALFACALCIDOL
  10. GINKGO BILOBA EXTRACT [Concomitant]
     Active Substance: GINKGO
  11. TRAMADOL. [Concomitant]
     Active Substance: TRAMADOL
  12. GLUTATHIONE [Concomitant]
     Active Substance: GLUTATHIONE
     Dosage: REDUCED
  13. FUROSEMIDE. [Concomitant]
     Active Substance: FUROSEMIDE
  14. LANSOPRAZOLE. [Concomitant]
     Active Substance: LANSOPRAZOLE
  15. DOPAMINE [Concomitant]
     Active Substance: DOPAMINE\DOPAMINE HYDROCHLORIDE
  16. NORVASC [Concomitant]
     Active Substance: AMLODIPINE BESYLATE
     Dosage: 1 DF, 1X/DAY
  17. MEROPENEM. [Concomitant]
     Active Substance: MEROPENEM
  18. OSELTAMIVIR [Concomitant]
     Active Substance: OSELTAMIVIR

REACTIONS (2)
  - Rhabdomyolysis [Not Recovered/Not Resolved]
  - Multiple organ dysfunction syndrome [Unknown]

NARRATIVE: CASE EVENT DATE: 20170817
